FAERS Safety Report 25533640 (Version 2)
Quarter: 2025Q3

REPORT INFORMATION
  Report Type: Spontaneous
  Country: US (occurrence: US)
  Receive Date: 20250709
  Receipt Date: 20250721
  Transmission Date: 20251020
  Serious: Yes (Other)
  Sender: AUROBINDO
  Company Number: US-MLMSERVICE-20250620-PI548732-00117-1

PATIENT
  Age: 51 Year
  Sex: Female
  Weight: 80.5 kg

DRUGS (5)
  1. ACETAZOLAMIDE [Suspect]
     Active Substance: ACETAZOLAMIDE
     Indication: Neurocysticercosis
     Dosage: 250 MILLIGRAM, 3 TIMES A DAY
     Route: 065
  2. ACETAZOLAMIDE [Suspect]
     Active Substance: ACETAZOLAMIDE
     Indication: Hydrocephalus
     Dosage: 500 MILLIGRAM, TWO TIMES A DAY
     Route: 065
  3. DEXAMETHASONE [Suspect]
     Active Substance: DEXAMETHASONE
     Indication: Hydrocephalus
     Dosage: 12 MILLIGRAM, ONCE A DAY
     Route: 042
  4. ALBENDAZOLE [Concomitant]
     Active Substance: ALBENDAZOLE
     Indication: Neurocysticercosis
     Dosage: 600 MILLIGRAM, TWO TIMES A DAY
     Route: 065
  5. Praziquantel Dci [Concomitant]
     Indication: Neurocysticercosis
     Dosage: 1350 MILLIGRAM, 3 TIMES A DAY
     Route: 065

REACTIONS (1)
  - Hypokalaemia [Unknown]
